FAERS Safety Report 5565279-1 (Version None)
Quarter: 2007Q4

REPORT INFORMATION
  Report Type: 
  Country: None (occurrence: None)
  Receive Date: 20071218
  Receipt Date: 20020128
  Transmission Date: 20080405
  Serious: Yes (Death, Hospitalization)
  Sender: FDA-Public Use
  Company Number: TW-ROCHE-305706

PATIENT
  Age: 81 Year
  Sex: Female

DRUGS (4)
  1. TICLOPIDINE HCL [Suspect]
     Route: 065
  2. TICLOPIDINE HCL [Suspect]
     Route: 065
  3. FELODIPINE [Concomitant]
     Indication: HYPERTENSION
  4. BISOPROLOL [Concomitant]

REACTIONS (4)
  - DISEASE PROGRESSION [None]
  - MULTI-ORGAN FAILURE [None]
  - PNEUMONIA [None]
  - THROMBOTIC THROMBOCYTOPENIC PURPURA [None]
